FAERS Safety Report 8190378-8 (Version None)
Quarter: 2012Q1

REPORT INFORMATION
  Report Type: 
  Country: None (occurrence: None)
  Receive Date: 20120307
  Receipt Date: 20120301
  Transmission Date: 20120608
  Serious: Yes (Hospitalization)
  Sender: FDA-Public Use
  Company Number: US-CELGENEUS-163-21880-11123573

PATIENT
  Sex: Female
  Weight: 83.536 kg

DRUGS (4)
  1. METFORMIN [Concomitant]
     Dosage: 500 MILLIGRAM
     Route: 065
  2. REVLIMID [Suspect]
     Indication: MULTIPLE MYELOMA
     Dosage: 25 MILLIGRAM
     Route: 048
     Dates: start: 20110801
  3. GLIPIZIDE [Concomitant]
     Dosage: 10 MILLIGRAM
     Route: 065
  4. LISINOPRIL [Concomitant]
     Dosage: 10 MILLIGRAM
     Route: 065

REACTIONS (5)
  - ABDOMINAL PAIN UPPER [None]
  - FULL BLOOD COUNT DECREASED [None]
  - DISEASE PROGRESSION [None]
  - MULTIPLE MYELOMA [None]
  - WHITE BLOOD CELL COUNT INCREASED [None]
